FAERS Safety Report 15333079 (Version 1)
Quarter: 2018Q3

REPORT INFORMATION
  Report Type: Spontaneous
  Country: US (occurrence: US)
  Receive Date: 20180830
  Receipt Date: 20180830
  Transmission Date: 20181010
  Serious: Yes (Other)
  Sender: FDA-Public Use
  Company Number: US-HIKMA PHARMACEUTICALS USA INC.-US-H14001-18-07080

PATIENT
  Age: 73 Year
  Sex: Male

DRUGS (6)
  1. KETOCONAZOLE. [Suspect]
     Active Substance: KETOCONAZOLE
     Indication: HYPERADRENOCORTICISM
     Route: 065
  2. ETOPOSIDE. [Suspect]
     Active Substance: ETOPOSIDE
     Indication: PROSTATE CANCER
     Route: 065
  3. SPIRONOLACTONE. [Suspect]
     Active Substance: SPIRONOLACTONE
     Indication: HYPERADRENOCORTICISM
     Route: 065
  4. MIFEPRISTONE [Suspect]
     Active Substance: MIFEPRISTONE
     Indication: HYPERADRENOCORTICISM
     Route: 065
  5. CARBOPLATIN. [Suspect]
     Active Substance: CARBOPLATIN
     Indication: PROSTATE CANCER
     Route: 065
  6. METYRAPONE [Suspect]
     Active Substance: METYRAPONE
     Indication: HYPERADRENOCORTICISM
     Route: 065

REACTIONS (4)
  - Sepsis [Unknown]
  - Deep vein thrombosis [Unknown]
  - Opportunistic infection [Unknown]
  - Delirium [Unknown]
